FAERS Safety Report 19439356 (Version 5)
Quarter: 2022Q3

REPORT INFORMATION
  Report Type: Report from Study
  Country: CN (occurrence: CN)
  Receive Date: 20210618
  Receipt Date: 20220919
  Transmission Date: 20221027
  Serious: Yes (Hospitalization)
  Sender: FDA-Public Use
  Company Number: CN-PFIZER INC-2021687757

PATIENT
  Age: 50 Year
  Sex: Female

DRUGS (4)
  1. EPIRUBICIN HYDROCHLORIDE [Suspect]
     Active Substance: EPIRUBICIN HYDROCHLORIDE
     Indication: Triple negative breast cancer
     Dosage: 11SEP2020, RECEIVED MOST RECENT DOSE OF EPIRUBICIN (150 MG) PRIOR TO SAE (90 MG/M2, 1 IN 2 WK)
     Route: 042
     Dates: start: 20200827
  2. PACLITAXEL [Suspect]
     Active Substance: PACLITAXEL
     Indication: Triple negative breast cancer
     Dosage: 20AUG2020, RECEIVED MOST RECENT DOSE OF PACLITAXEL (135 MG) PRIOR TO SAE (80 MG/M2, 1 IN 1 WK)
     Route: 042
     Dates: start: 20200604
  3. ATEZOLIZUMAB [Suspect]
     Active Substance: ATEZOLIZUMAB
     Indication: Triple negative breast cancer
     Dosage: 11SEP2020, RECEIVED MOST RECENT DOSE OF ATEZOLIZUMAB (840 MG) PRIOR TO SAE, 840 MG, 1 IN 2 WEEK
     Route: 041
     Dates: start: 20200604
  4. CYCLOPHOSPHAMIDE [Suspect]
     Active Substance: CYCLOPHOSPHAMIDE
     Indication: Triple negative breast cancer
     Dosage: 11SEP2020,RECEIVED MOST RECENT DOSE OF CYCLOPHOSPHAMIDE(1000 MG) PRIOR TO SAE (600 MG/M2, 1 IN 2 WK)
     Route: 042
     Dates: start: 20200827

REACTIONS (1)
  - Infusion related reaction [Recovered/Resolved]

NARRATIVE: CASE EVENT DATE: 20200911
